FAERS Safety Report 7391011-5 (Version None)
Quarter: 2011Q2

REPORT INFORMATION
  Report Type: 
  Country: None (occurrence: None)
  Receive Date: 20110404
  Receipt Date: 20110322
  Transmission Date: 20111010
  Serious: Yes (Hospitalization)
  Sender: FDA-Public Use
  Company Number: US-EISAI INC-E7389-00959-CLI-US

PATIENT
  Sex: Female
  Weight: 60 kg

DRUGS (5)
  1. ACETAMINOPHEN [Concomitant]
     Route: 042
  2. PRIMAXIN [Concomitant]
     Route: 042
  3. E7389 (BOLD) [Suspect]
     Route: 041
     Dates: start: 20100614, end: 20100915
  4. LIDOCAINE HCL VISCOUS [Concomitant]
     Route: 048
  5. LACTULOSE [Concomitant]
     Route: 048

REACTIONS (2)
  - FEBRILE NEUTROPENIA [None]
  - LEUKOPENIA [None]
